FAERS Safety Report 7337367-0 (Version None)
Quarter: 2011Q1

REPORT INFORMATION
  Report Type: 
  Country: None (occurrence: None)
  Receive Date: 20110308
  Receipt Date: 20110308
  Transmission Date: 20110831
  Serious: Yes (Other)
  Sender: FDA-Public Use
  Company Number: None

PATIENT
  Age: 29 Year
  Sex: Male
  Weight: 68.0396 kg

DRUGS (1)
  1. ALCOHOL WIPE UNKNOWN UNKNOWN UNKNOWN [Suspect]
     Indication: LOCAL ANAESTHESIA
     Dosage: TOPICAL ANTISEPTIC TOP
     Route: 061
     Dates: start: 20100526, end: 20100604

REACTIONS (6)
  - PHLEBITIS [None]
  - PYREXIA [None]
  - ARTHROPOD BITE [None]
  - FRACTURED SACRUM [None]
  - PRURITUS [None]
  - TRANSMISSION OF AN INFECTIOUS AGENT VIA A MEDICINAL PRODUCT [None]
